FAERS Safety Report 6406971-6 (Version None)
Quarter: 2009Q4

REPORT INFORMATION
  Report Type: 
  Country: None (occurrence: None)
  Receive Date: 20091020
  Receipt Date: 20091007
  Transmission Date: 20100525
  Serious: Yes (Other)
  Sender: FDA-Public Use
  Company Number: JP-PFIZER INC-2009281016

PATIENT
  Age: 51 Year

DRUGS (4)
  1. SOLU-MEDROL [Suspect]
     Dosage: 1 G, UNK
     Route: 042
  2. BASILIXIMAB [Concomitant]
  3. TACROLIMUS [Concomitant]
  4. MYCOPHENOLATE MOFETIL [Concomitant]

REACTIONS (3)
  - ASCITES [None]
  - LIVER DISORDER [None]
  - TRANSPLANT REJECTION [None]
